FAERS Safety Report 9101717 (Version 3)
Quarter: 2014Q1

REPORT INFORMATION
  Report Type: Spontaneous
  Country: CH (occurrence: CH)
  Receive Date: 20130218
  Receipt Date: 20140113
  Transmission Date: 20141002
  Serious: Yes (Disabling, Other)
  Sender: FDA-Public Use
  Company Number: CH-TEVA-382388ISR

PATIENT
  Age: 63 Year
  Sex: Female
  Weight: 65 kg

DRUGS (6)
  1. AZITHROMYCIN-TEVA [Suspect]
     Indication: COUGH
     Dosage: 500 MILLIGRAM DAILY;
     Route: 048
     Dates: start: 20121210, end: 20121210
  2. AZITHROMYCIN-TEVA [Suspect]
     Dosage: 250 MILLIGRAM DAILY;
     Route: 048
     Dates: start: 20121211, end: 20121214
  3. ASPIRIN CARDIO [Concomitant]
     Route: 065
  4. PRAVASTATIN [Concomitant]
     Route: 065
  5. COUGH SYRUP [Concomitant]
     Route: 048
  6. VI-DE 3 DROPS [Concomitant]
     Route: 048

REACTIONS (6)
  - Anosmia [Not Recovered/Not Resolved]
  - Dysgeusia [Not Recovered/Not Resolved]
  - Parosmia [Unknown]
  - Depression [Unknown]
  - Bronchitis [Unknown]
  - Aptyalism [Not Recovered/Not Resolved]
